FAERS Safety Report 20732320 (Version 2)
Quarter: 2022Q2

REPORT INFORMATION
  Report Type: Spontaneous
  Country: US (occurrence: US)
  Receive Date: 20220420
  Receipt Date: 20220511
  Transmission Date: 20220721
  Serious: Yes (Other)
  Sender: FDA-Public Use
  Company Number: US-SUNOVION-2022SUN001218

PATIENT
  Age: 71 Year
  Sex: Female

DRUGS (3)
  1. LATUDA [Suspect]
     Active Substance: LURASIDONE HYDROCHLORIDE
     Indication: Affective disorder
     Dosage: 40 MG
     Route: 048
  2. LATUDA [Suspect]
     Active Substance: LURASIDONE HYDROCHLORIDE
     Dosage: 10 MG (CUTS 20MG TABLET IN HALF)
  3. IBRUTINIB [Concomitant]
     Active Substance: IBRUTINIB
     Dosage: UNK

REACTIONS (11)
  - Immunosuppression [Unknown]
  - Vaccination failure [Unknown]
  - Limb discomfort [Unknown]
  - Tension [Unknown]
  - Nasal dryness [Unknown]
  - Hair texture abnormal [Unknown]
  - Tremor [Not Recovered/Not Resolved]
  - Anxiety [Unknown]
  - Dry mouth [Unknown]
  - Off label use [Unknown]
  - Wrong technique in product usage process [Unknown]
